FAERS Safety Report 23511525 (Version 1)
Quarter: 2024Q1

REPORT INFORMATION
  Report Type: Spontaneous
  Country: US (occurrence: US)
  Receive Date: 20240212
  Receipt Date: 20240212
  Transmission Date: 20240409
  Serious: No
  Sender: FDA-Public Use
  Company Number: US-ELI_LILLY_AND_COMPANY-US202402005938

PATIENT
  Age: 33 Year
  Sex: Female

DRUGS (1)
  1. TALTZ [Suspect]
     Active Substance: IXEKIZUMAB
     Indication: Axial spondyloarthritis
     Dosage: 80 MG, UNKNOWN
     Route: 058
     Dates: start: 20231121

REACTIONS (2)
  - Migraine [Unknown]
  - Injection site reaction [Unknown]
